FAERS Safety Report 7513105-3 (Version None)
Quarter: 2011Q2

REPORT INFORMATION
  Report Type: 
  Country: None (occurrence: None)
  Receive Date: 20110531
  Receipt Date: 20110527
  Transmission Date: 20111010
  Serious: Yes (Other)
  Sender: FDA-Public Use
  Company Number: US-PFIZER INC-2011115567

PATIENT
  Sex: Female
  Weight: 68.027 kg

DRUGS (4)
  1. LYRICA [Suspect]
     Indication: BACK PAIN
  2. LYRICA [Suspect]
     Indication: OSTEOPENIA
  3. LYRICA [Suspect]
     Indication: NERVE INJURY
     Dosage: 50 MG, UNK
     Route: 048
     Dates: start: 20110524
  4. LYRICA [Suspect]
     Indication: INTERVERTEBRAL DISC DEGENERATION

REACTIONS (4)
  - TREMOR [None]
  - BACK PAIN [None]
  - NAUSEA [None]
  - PAIN [None]
